FAERS Safety Report 8481159-6 (Version None)
Quarter: 2012Q3

REPORT INFORMATION
  Report Type: 
  Country: None (occurrence: None)
  Receive Date: 20120702
  Receipt Date: 20120627
  Transmission Date: 20120928
  Serious: Yes (Other)
  Sender: FDA-Public Use
  Company Number: PHHY2011CA106584

PATIENT
  Sex: Female

DRUGS (4)
  1. CALCIUM [Concomitant]
  2. ZOLEDRONOC ACID [Suspect]
     Indication: OSTEOPOROSIS POSTMENOPAUSAL
     Dosage: 5 MG
     Route: 042
     Dates: start: 20100830
  3. VITAMIN D [Concomitant]
  4. COUMADIN [Concomitant]

REACTIONS (3)
  - MOBILITY DECREASED [None]
  - POOR VENOUS ACCESS [None]
  - DEMENTIA ALZHEIMER'S TYPE [None]
